FAERS Safety Report 20490132 (Version 1)
Quarter: 2022Q1

REPORT INFORMATION
  Report Type: Spontaneous
  Country: IT (occurrence: IT)
  Receive Date: 20220218
  Receipt Date: 20220218
  Transmission Date: 20220423
  Serious: Yes (Hospitalization, Other)
  Sender: FDA-Public Use
  Company Number: IT-GLAXOSMITHKLINE-IT2022GSK026053

PATIENT
  Age: 10 Year
  Sex: Female

DRUGS (1)
  1. BECLOMETHASONE DIPROPIONATE [Suspect]
     Active Substance: BECLOMETHASONE DIPROPIONATE
     Indication: Sinusitis
     Dosage: 100 UG, BID
     Route: 055

REACTIONS (9)
  - Endophthalmitis [Unknown]
  - Vision blurred [Unknown]
  - Pain [Unknown]
  - Ocular hyperaemia [Unknown]
  - Orbital oedema [Unknown]
  - Exophthalmos [Recovered/Resolved]
  - Retinal detachment [Unknown]
  - Cellulitis orbital [Unknown]
  - Sinusitis [Unknown]
